FAERS Safety Report 8364714-3 (Version None)
Quarter: 2012Q2

REPORT INFORMATION
  Report Type: 
  Country: None (occurrence: None)
  Receive Date: 20120516
  Receipt Date: 20120508
  Transmission Date: 20120825
  Serious: Yes (Death)
  Sender: FDA-Public Use
  Company Number: US-BRISTOL-MYERS SQUIBB COMPANY-16501868

PATIENT
  Age: 74 Year
  Sex: Male

DRUGS (9)
  1. VITAMIN E [Concomitant]
  2. ASCORBIC ACID [Concomitant]
  3. VITAMIN B COMPLEX CAP [Concomitant]
     Dates: start: 20120301
  4. ATIVAN [Concomitant]
     Indication: NERVOUSNESS
  5. YERVOY [Suspect]
     Indication: METASTATIC MALIGNANT MELANOMA
     Dosage: 1 INF
     Route: 042
     Dates: start: 20120301
  6. CALCIUM [Concomitant]
     Dates: start: 20120301
  7. CARDIAZEM [Concomitant]
     Route: 048
  8. MAGNESIUM [Concomitant]
     Dates: start: 20120301
  9. POTASSIUM CHLORIDE [Concomitant]
     Dates: start: 20120301

REACTIONS (2)
  - DEATH [None]
  - PALPITATIONS [None]
